FAERS Safety Report 6962915-X (Version None)
Quarter: 2010Q3

REPORT INFORMATION
  Report Type: 
  Country: None (occurrence: None)
  Receive Date: 20100831
  Receipt Date: 20100818
  Transmission Date: 20110219
  Serious: Yes (Hospitalization)
  Sender: FDA-Public Use
  Company Number: 2010MA001836

PATIENT
  Age: 60 Year
  Sex: Male

DRUGS (5)
  1. CLONAZEPAM [Suspect]
     Dosage: 2 MG, TID, PO
     Route: 048
  2. QUETIAPINE [Concomitant]
  3. FLUOXETINE [Concomitant]
  4. PRAZOSIN HCL [Concomitant]
  5. PREV MEDS [Concomitant]

REACTIONS (31)
  - ANXIETY [None]
  - AUTONOMIC NERVOUS SYSTEM IMBALANCE [None]
  - BLOOD CREATINE PHOSPHOKINASE INCREASED [None]
  - BLOOD PRESSURE INCREASED [None]
  - BLOOD SODIUM DECREASED [None]
  - CATATONIA [None]
  - COMPUTERISED TOMOGRAM ABNORMAL [None]
  - CONDITION AGGRAVATED [None]
  - CONFUSIONAL STATE [None]
  - DEPRESSION [None]
  - DIET REFUSAL [None]
  - ELECTROCARDIOGRAM QT PROLONGED [None]
  - FLUID INTAKE RESTRICTION [None]
  - FLUSHING [None]
  - GRIMACING [None]
  - HYPERHIDROSIS [None]
  - HYPERVIGILANCE [None]
  - INCOHERENT [None]
  - MEMORY IMPAIRMENT [None]
  - MOBILITY DECREASED [None]
  - MOTOR DYSFUNCTION [None]
  - MUSCLE RIGIDITY [None]
  - MUTISM [None]
  - NEGATIVISM [None]
  - PARANOIA [None]
  - POST-TRAUMATIC STRESS DISORDER [None]
  - RESPIRATORY RATE INCREASED [None]
  - RESTLESSNESS [None]
  - STEREOTYPY [None]
  - TACHYPNOEA [None]
  - WITHDRAWAL SYNDROME [None]
